FAERS Safety Report 4968679-3 (Version None)
Quarter: 2006Q2

REPORT INFORMATION
  Report Type: 
  Country: None (occurrence: None)
  Receive Date: 20060411
  Receipt Date: 20060316
  Transmission Date: 20061013
  Serious: Yes (Hospitalization)
  Sender: FDA-Public Use
  Company Number: PHHO2006US04645

PATIENT
  Age: 15 Year
  Sex: Male
  Weight: 50.7 kg

DRUGS (1)
  1. EXJADE [Suspect]
     Indication: BLOOD IRON INCREASED
     Dosage: 1000 MG, QD
     Route: 048
     Dates: start: 20051128, end: 20060316

REACTIONS (14)
  - ABDOMINAL PAIN [None]
  - ACUTE CHEST SYNDROME [None]
  - APLASTIC ANAEMIA [None]
  - APPENDICITIS [None]
  - BACK PAIN [None]
  - DISEASE PROGRESSION [None]
  - ENTERITIS [None]
  - FLUID INTAKE REDUCED [None]
  - HAEMOGLOBIN DECREASED [None]
  - NEUTROPENIA [None]
  - PNEUMONIA [None]
  - PYREXIA [None]
  - RETICULOCYTOPENIA [None]
  - SICKLE CELL ANAEMIA WITH CRISIS [None]
